FAERS Safety Report 10029799 (Version 1)
Quarter: 2014Q1

REPORT INFORMATION
  Report Type: Report from Study
  Country: US (occurrence: None)
  Receive Date: 20140320
  Receipt Date: 20140320
  Transmission Date: 20141002
  Serious: Yes (Other)
  Sender: FDA-Public Use
  Company Number: AUR-APL-2013-03355

PATIENT
  Age: 39 Year
  Sex: Female

DRUGS (3)
  1. LAMIVUDINE [Suspect]
     Indication: ANTIRETROVIRAL THERAPY
     Route: 048
  2. ABACAVIR [Suspect]
     Indication: ANTIRETROVIRAL THERAPY
     Route: 048
  3. LOPINAVIR + RITONAVIR (KALETRA) [Suspect]
     Indication: ANTIRETROVIRAL THERAPY
     Route: 048

REACTIONS (6)
  - Dialysis [None]
  - Blood pressure increased [None]
  - Blood glucose increased [None]
  - Chronic obstructive pulmonary disease [None]
  - Superior vena cava syndrome [None]
  - Maternal exposure during pregnancy [None]
